FAERS Safety Report 5962652-4 (Version None)
Quarter: 2008Q4

REPORT INFORMATION
  Report Type: 
  Country: None (occurrence: None)
  Receive Date: 20081121
  Receipt Date: 20081119
  Transmission Date: 20090506
  Serious: Yes (Death)
  Sender: FDA-Public Use
  Company Number: PHHY2008BR28820

PATIENT
  Age: 97 Year
  Sex: Female

DRUGS (1)
  1. ZELMAC [Suspect]
     Indication: GASTROINTESTINAL DISORDER THERAPY
     Dosage: 6 MG
     Route: 048
     Dates: start: 20060201

REACTIONS (2)
  - ILEUS PARALYTIC [None]
  - PNEUMONIA [None]
